FAERS Safety Report 11343036 (Version 1)
Quarter: 2015Q3

REPORT INFORMATION
  Report Type: Spontaneous
  Country: US (occurrence: US)
  Receive Date: 20150805
  Receipt Date: 20150805
  Transmission Date: 20151125
  Serious: No
  Sender: FDA-Public Use
  Company Number: US-ANACOR-2015ANA00040

PATIENT
  Age: 29 Year
  Sex: Female
  Weight: 74.83 kg

DRUGS (2)
  1. KERYDIN [Suspect]
     Active Substance: TAVABOROLE
     Indication: ONYCHOMYCOSIS
     Dosage: UNK UNK, 1X/DAY
     Route: 061
     Dates: start: 20150308, end: 20150505
  2. PIRMELLA 7/7/7 [Concomitant]
     Active Substance: ETHINYL ESTRADIOL\NORETHINDRONE

REACTIONS (5)
  - Dermatitis [Unknown]
  - Wound [Unknown]
  - Application site erythema [Unknown]
  - Application site pain [Unknown]
  - Nail bed disorder [Unknown]

NARRATIVE: CASE EVENT DATE: 201504
